FAERS Safety Report 4467037-8 (Version None)
Quarter: 2004Q4

REPORT INFORMATION
  Report Type: 
  Country: None (occurrence: None)
  Receive Date: 20041004
  Receipt Date: 20040927
  Transmission Date: 20050328
  Serious: Yes (Disabling)
  Sender: FDA-Public Use
  Company Number: MK200409-0232-1

PATIENT
  Sex: Male

DRUGS (1)
  1. HYDROCODONE/APAP TABLETS 7.5MG/750MG [Suspect]
     Indication: PAIN
     Dosage: 7.5/750MG, QID
     Dates: start: 19990901, end: 20040927

REACTIONS (1)
  - DEAFNESS UNILATERAL [None]
